FAERS Safety Report 7455496-8 (Version None)
Quarter: 2011Q2

REPORT INFORMATION
  Report Type: 
  Country: None (occurrence: None)
  Receive Date: 20110503
  Receipt Date: 20110422
  Transmission Date: 20111010
  Serious: Yes (Hospitalization)
  Sender: FDA-Public Use
  Company Number: US-BAXTER-2011BH012653

PATIENT
  Age: 62 Year
  Sex: Female
  Weight: 60 kg

DRUGS (19)
  1. GAMMAGARD LIQUID [Suspect]
     Route: 042
     Dates: start: 20110331, end: 20110401
  2. ACETAMINOPHEN [Concomitant]
     Indication: PROPHYLAXIS
     Route: 048
     Dates: start: 20110331
  3. CELEXA [Concomitant]
     Indication: PRODUCT USED FOR UNKNOWN INDICATION
     Route: 048
  4. GAMMAGARD LIQUID [Suspect]
     Indication: DEMYELINATING POLYNEUROPATHY
     Route: 042
     Dates: start: 20110412
  5. GAMMAGARD LIQUID [Suspect]
     Route: 042
     Dates: start: 20110101
  6. GAMMAGARD LIQUID [Suspect]
     Route: 042
     Dates: start: 20110412
  7. GAMMAGARD LIQUID [Suspect]
     Route: 042
     Dates: start: 20110331, end: 20110401
  8. DIPHENHYDRAMINE [Concomitant]
     Indication: PROPHYLAXIS
     Route: 048
     Dates: start: 20110331
  9. CRESTOR [Concomitant]
     Indication: PRODUCT USED FOR UNKNOWN INDICATION
     Route: 048
  10. GAMMAGARD LIQUID [Suspect]
     Route: 042
     Dates: start: 20110101
  11. GAMMAGARD LIQUID [Suspect]
     Route: 042
     Dates: start: 20110101
  12. HYDROCHLOROTHIAZIDE [Concomitant]
     Indication: PRODUCT USED FOR UNKNOWN INDICATION
     Route: 048
  13. GAMMAGARD LIQUID [Suspect]
     Route: 042
     Dates: start: 20110412
  14. GAMMAGARD LIQUID [Suspect]
     Route: 042
     Dates: start: 20110331, end: 20110401
  15. GAMMAGARD LIQUID [Suspect]
     Route: 042
     Dates: start: 20110331, end: 20110401
  16. GAMMAGARD LIQUID [Suspect]
     Route: 042
     Dates: start: 20110101
  17. VITAMIN E [Concomitant]
     Indication: PRODUCT USED FOR UNKNOWN INDICATION
     Route: 048
  18. GAMMAGARD LIQUID [Suspect]
     Indication: OFF LABEL USE
     Route: 042
     Dates: start: 20110412
  19. SOLU-CORTEF [Concomitant]
     Indication: PROPHYLAXIS
     Route: 048
     Dates: start: 20110331

REACTIONS (3)
  - DEEP VEIN THROMBOSIS [None]
  - CHEST PAIN [None]
  - DYSPNOEA [None]
